FAERS Safety Report 4664493-7 (Version None)
Quarter: 2005Q2

REPORT INFORMATION
  Report Type: 
  Country: None (occurrence: None)
  Receive Date: 20050518
  Receipt Date: 20050511
  Transmission Date: 20051028
  Serious: Yes (Life-Threatening, Other)
  Sender: FDA-Public Use
  Company Number: 200514242GDDC

PATIENT
  Age: 80 Year
  Sex: Male
  Weight: 89 kg

DRUGS (3)
  1. CLEXANE [Suspect]
     Dates: start: 20050216, end: 20050221
  2. PLAVIX [Suspect]
     Route: 048
     Dates: start: 20050215, end: 20050218
  3. ASPIRIN [Suspect]
     Route: 048

REACTIONS (5)
  - CIRCULATORY COLLAPSE [None]
  - FALL [None]
  - GASTROINTESTINAL HAEMORRHAGE [None]
  - HYPOTENSION [None]
  - SYNCOPE VASOVAGAL [None]
